FAERS Safety Report 18627534 (Version 1)
Quarter: 2020Q4

REPORT INFORMATION
  Report Type: Spontaneous
  Country: US (occurrence: US)
  Receive Date: 20201216
  Receipt Date: 20201216
  Transmission Date: 20210114
  Serious: Yes (Hospitalization)
  Sender: FDA-Public Use
  Company Number: None

PATIENT
  Age: 69 Year
  Sex: Female

DRUGS (10)
  1. ELIQUIS [Concomitant]
     Active Substance: APIXABAN
  2. EZETIMBE [Concomitant]
     Active Substance: EZETIMIBE
  3. LISINOPRIL. [Concomitant]
     Active Substance: LISINOPRIL
  4. FLUTICASONE. [Concomitant]
     Active Substance: FLUTICASONE
  5. FOLIC ACID. [Concomitant]
     Active Substance: FOLIC ACID
  6. HUMIRA [Suspect]
     Active Substance: ADALIMUMAB
     Indication: RHEUMATOID ARTHRITIS
     Dosage: FREQUENCY: EVERY 14 DAYS
     Route: 058
     Dates: start: 20170717
  7. TRAMADOL. [Concomitant]
     Active Substance: TRAMADOL
  8. METH OTREXATE [Concomitant]
  9. NEXIUM [Concomitant]
     Active Substance: ESOMEPRAZOLE MAGNESIUM
  10. PREDNISONE. [Concomitant]
     Active Substance: PREDNISONE

REACTIONS (1)
  - Thyroid operation [None]
